FAERS Safety Report 4956054-7 (Version None)
Quarter: 2006Q1

REPORT INFORMATION
  Report Type: 
  Country: None (occurrence: None)
  Receive Date: 20060328
  Receipt Date: 20060321
  Transmission Date: 20060701
  Serious: Yes (Other)
  Sender: FDA-Public Use
  Company Number: GB-MERCK-0603GBR00094

PATIENT
  Age: 49 Year
  Sex: Female

DRUGS (8)
  1. ZOCOR [Suspect]
     Indication: BLOOD CHOLESTEROL INCREASED
     Route: 048
     Dates: start: 20050301, end: 20060303
  2. ATENOLOL [Concomitant]
     Route: 065
  3. TRAMADOL HYDROCHLORIDE [Concomitant]
     Route: 065
  4. OMEPRAZOLE [Concomitant]
     Route: 048
  5. NORETHINDRONE [Concomitant]
     Route: 048
  6. ACYCLOVIR [Concomitant]
     Route: 065
  7. ASCORBIC ACID [Concomitant]
     Route: 065
  8. ZOPICLONE [Concomitant]
     Route: 065

REACTIONS (1)
  - MYOSITIS [None]
